FAERS Safety Report 12408501 (Version 2)
Quarter: 2016Q2

REPORT INFORMATION
  Report Type: Spontaneous
  Country: IT (occurrence: IT)
  Receive Date: 20160526
  Receipt Date: 20160607
  Transmission Date: 20160815
  Serious: Yes (Other)
  Sender: FDA-Public Use
  Company Number: IT-TEVA-662257ISR

PATIENT

DRUGS (1)
  1. TEMOZOLOMIDE. [Suspect]
     Active Substance: TEMOZOLOMIDE
     Indication: EPENDYMOMA
     Dosage: 150 TO 200 MG/M2/DAY ON DAYS 1 TO 5 OF 28 DAYS CYCLE
     Route: 065

REACTIONS (1)
  - Bone marrow failure [Unknown]
